FAERS Safety Report 6337856-1 (Version None)
Quarter: 2009Q3

REPORT INFORMATION
  Report Type: 
  Country: None (occurrence: None)
  Receive Date: 20090902
  Receipt Date: 20090825
  Transmission Date: 20100115
  Serious: Yes (Other)
  Sender: FDA-Public Use
  Company Number: B0590034A

PATIENT
  Age: 40 Year
  Sex: Female

DRUGS (2)
  1. NARAMIG [Suspect]
     Indication: MIGRAINE
     Dosage: 2.5MG SINGLE DOSE
     Route: 048
     Dates: start: 20090814
  2. CITALOPRAM HYDROBROMIDE [Suspect]
     Dosage: 20MG PER DAY
     Route: 048
     Dates: start: 20090201

REACTIONS (3)
  - DRUG ADMINISTRATION ERROR [None]
  - DRUG INTERACTION [None]
  - MALAISE [None]
